FAERS Safety Report 5923691-2 (Version None)
Quarter: 2008Q4

REPORT INFORMATION
  Report Type: 
  Country: None (occurrence: None)
  Receive Date: 20081020
  Receipt Date: 20081010
  Transmission Date: 20090506
  Serious: Yes (Death, Hospitalization)
  Sender: FDA-Public Use
  Company Number: A0742046A

PATIENT
  Age: 56 Year
  Sex: Male

DRUGS (15)
  1. AVANDIA [Suspect]
     Indication: DIABETES MELLITUS
     Dosage: 8MG PER DAY
     Route: 048
     Dates: start: 20020601, end: 20060822
  2. METFORMIN HYDROCHLORIDE [Concomitant]
  3. AMARYL [Concomitant]
  4. ASPIRIN [Concomitant]
  5. GLUCOSAMINE CHONDROITIN [Concomitant]
  6. NIACIN [Concomitant]
  7. NIASPAN [Concomitant]
  8. PRILOSEC [Concomitant]
  9. NABUMETONE [Concomitant]
  10. DIAZEPAM [Concomitant]
  11. OMEPRAZOLE [Concomitant]
  12. LEVITRA [Concomitant]
  13. VIAGRA [Concomitant]
  14. CIALIS [Concomitant]
  15. ANDRODERM [Concomitant]

REACTIONS (2)
  - CARDIAC FAILURE CONGESTIVE [None]
  - MYOCARDIAL INFARCTION [None]
